FAERS Safety Report 4791238-2 (Version None)
Quarter: 2005Q4

REPORT INFORMATION
  Report Type: 
  Country: None (occurrence: None)
  Receive Date: 20051005
  Receipt Date: 20050923
  Transmission Date: 20060501
  Serious: Yes (Other)
  Sender: FDA-Public Use
  Company Number: 12453

PATIENT
  Age: 29 Year
  Sex: Male

DRUGS (5)
  1. VINCRISTINE [Suspect]
  2. CYCLOPHOSPHAMIDE [Concomitant]
  3. PREDNISOLONE [Concomitant]
  4. RITUXIMAB [Concomitant]
  5. DOXORUBICIN HCL [Suspect]

REACTIONS (3)
  - BLOOD PRESSURE INCREASED [None]
  - HEART RATE INCREASED [None]
  - RASH ERYTHEMATOUS [None]
